FAERS Safety Report 11923356 (Version 2)
Quarter: 2016Q1

REPORT INFORMATION
  Report Type: Spontaneous
  Country: US (occurrence: US)
  Receive Date: 20160118
  Receipt Date: 20160125
  Transmission Date: 20160526
  Serious: Yes (Other)
  Sender: FDA-Public Use
  Company Number: US-ROCHE-1694454

PATIENT
  Sex: Female

DRUGS (23)
  1. PREDNISONE. [Suspect]
     Active Substance: PREDNISONE
     Indication: PRODUCT USED FOR UNKNOWN INDICATION
     Route: 065
  2. ASMANEX [Concomitant]
     Active Substance: MOMETASONE FUROATE
     Dosage: 120 METERED DOSES 220MCG/INH. 2 PUFFS TWICE DAILY.
     Route: 055
     Dates: start: 20151109
  3. POTASSIUM CHLORIDE. [Concomitant]
     Active Substance: POTASSIUM CHLORIDE
     Dosage: EXTENDED RELEASE
     Route: 048
     Dates: start: 20160108
  4. PREDNISONE. [Concomitant]
     Active Substance: PREDNISONE
     Dosage: TAKE 5 TABLETS DAILY
     Route: 048
  5. PROAIR HFA [Concomitant]
     Active Substance: ALBUTEROL SULFATE
     Dosage: 1 TO 2 PUFFS BY MOUTH EVERY 4 TO 6 HOURS IF NEEDED
     Route: 065
     Dates: start: 20130920
  6. AZITHROMYCIN ANHYDROUS. [Concomitant]
     Active Substance: AZITHROMYCIN ANHYDROUS
     Route: 048
  7. SPIRIVA [Concomitant]
     Active Substance: TIOTROPIUM BROMIDE MONOHYDRATE
     Route: 065
     Dates: start: 20130828
  8. IRBESARTAN. [Concomitant]
     Active Substance: IRBESARTAN
     Dosage: 30 TABLETS
     Route: 048
     Dates: start: 20151119
  9. DULERA [Concomitant]
     Active Substance: FORMOTEROL FUMARATE DIHYDRATE\MOMETASONE FUROATE
     Dosage: 2 PUFFS TWICE DAILY
     Route: 065
     Dates: start: 20140808
  10. ACCOLATE [Concomitant]
     Active Substance: ZAFIRLUKAST
  11. CEFUROXIME AXETIL. [Concomitant]
     Active Substance: CEFUROXIME AXETIL
     Dosage: FOR 10 DAYS
     Route: 048
     Dates: start: 20151119
  12. VITAMIN B6 [Concomitant]
     Active Substance: PYRIDOXINE HYDROCHLORIDE
     Route: 048
  13. THEOPHYLLINE [Concomitant]
     Active Substance: THEOPHYLLINE ANHYDROUS
     Dosage: EXTENDED RELEASE 12 HOURS
     Route: 048
     Dates: start: 20130502
  14. VITAMIN B12 [Concomitant]
     Active Substance: CYANOCOBALAMIN
     Route: 048
     Dates: start: 20131023
  15. XOLAIR [Suspect]
     Active Substance: OMALIZUMAB
     Dosage: 2X PER MONTH
     Route: 065
  16. AZITHROMYCIN ANHYDROUS. [Concomitant]
     Active Substance: AZITHROMYCIN ANHYDROUS
     Dosage: TAKE 2 TABLETS ON DAY 1 THEN TAKE 1 TABLET A DAY FOR 4 DAYS.
     Route: 048
     Dates: start: 20151119
  17. CLOTRIMAZOLE. [Concomitant]
     Active Substance: CLOTRIMAZOLE
     Dosage: FOR 10 DAYS
     Route: 048
     Dates: start: 20151117
  18. VITAMIN C [Concomitant]
     Active Substance: ASCORBIC ACID
     Route: 048
     Dates: start: 20131023
  19. OMEPRAZOLE. [Concomitant]
     Active Substance: OMEPRAZOLE
     Route: 048
     Dates: start: 20150817
  20. XOLAIR [Suspect]
     Active Substance: OMALIZUMAB
     Indication: MYCOTIC ALLERGY
     Route: 058
     Dates: start: 20131023, end: 20151006
  21. FUROSEMIDE. [Concomitant]
     Active Substance: FUROSEMIDE
     Dosage: 30 TABLETS
     Route: 048
     Dates: start: 20160108
  22. SELENIUM [Concomitant]
     Active Substance: SELENIUM
     Route: 048
     Dates: start: 20150728
  23. ZAFIRLUKAST. [Concomitant]
     Active Substance: ZAFIRLUKAST
     Dosage: AT LEAST 1 HOUR BEFORE OR 2 HOUR AFTER MEALS
     Route: 048
     Dates: start: 20130225

REACTIONS (20)
  - Alopecia [Unknown]
  - Asthma [Unknown]
  - Pruritus [Unknown]
  - Eye swelling [Unknown]
  - Ocular hyperaemia [Unknown]
  - Rash [Recovered/Resolved]
  - Obesity [Unknown]
  - Auditory disorder [Unknown]
  - Peripheral swelling [Unknown]
  - Dry skin [Unknown]
  - Dyspnoea [Recovered/Resolved]
  - Fluid retention [Unknown]
  - Tremor [Unknown]
  - Urticaria [Unknown]
  - Dysphonia [Unknown]
  - Hypergeusia [Unknown]
  - Drug ineffective [Unknown]
  - Pruritus [Recovered/Resolved]
  - Visual impairment [Unknown]
  - Oral mucosal exfoliation [Unknown]
